FAERS Safety Report 13500453 (Version 2)
Quarter: 2017Q4

REPORT INFORMATION
  Report Type: Spontaneous
  Country: US (occurrence: US)
  Receive Date: 20170501
  Receipt Date: 20171130
  Transmission Date: 20180320
  Serious: Yes (Other)
  Sender: FDA-Public Use
  Company Number: US-NOVOPROD-542383

PATIENT
  Age: 54 Year
  Sex: Female
  Weight: 90.25 kg

DRUGS (2)
  1. SAXENDA [Suspect]
     Active Substance: LIRAGLUTIDE
     Indication: OBESITY
     Dosage: 0.6 MG, QD
     Route: 058
     Dates: start: 20170410, end: 20170416
  2. SAXENDA [Suspect]
     Active Substance: LIRAGLUTIDE
     Dosage: 1.2 MG, QD
     Route: 058
     Dates: start: 20170417, end: 20170419

REACTIONS (4)
  - Diverticulitis [Unknown]
  - Urinary tract infection [Unknown]
  - Pancreatitis [Unknown]
  - Dehydration [Unknown]

NARRATIVE: CASE EVENT DATE: 20170418
